FAERS Safety Report 18957750 (Version 1)
Quarter: 2021Q1

REPORT INFORMATION
  Report Type: Spontaneous
  Country: US (occurrence: US)
  Receive Date: 20210301
  Receipt Date: 20210301
  Transmission Date: 20210420
  Serious: Yes (Hospitalization)
  Sender: FDA-Public Use
  Company Number: None

PATIENT
  Age: 71 Year
  Sex: Male

DRUGS (2)
  1. WARFARIN (WARFARIN NA (EXELAN) 5MG TAB) [Suspect]
     Active Substance: WARFARIN SODIUM
     Indication: CEREBROVASCULAR ACCIDENT PROPHYLAXIS
  2. WARFARIN (WARFARIN NA (EXELAN) 5MG TAB) [Suspect]
     Active Substance: WARFARIN SODIUM
     Indication: AORTIC VALVE REPLACEMENT

REACTIONS (10)
  - Syncope [None]
  - Pallor [None]
  - International normalised ratio increased [None]
  - Haemoglobin decreased [None]
  - Tachycardia [None]
  - Dizziness [None]
  - Gastric ulcer [None]
  - Faeces discoloured [None]
  - Gastric haemorrhage [None]
  - Lethargy [None]

NARRATIVE: CASE EVENT DATE: 20210222
